FAERS Safety Report 9124440 (Version 1)
Quarter: 2013Q1

REPORT INFORMATION
  Report Type: Spontaneous
  Country: US (occurrence: US)
  Receive Date: 20130227
  Receipt Date: 20130227
  Transmission Date: 20140127
  Serious: Yes (Hospitalization)
  Sender: FDA-Public Use
  Company Number: PHHY2013US018117

PATIENT
  Sex: Male

DRUGS (25)
  1. LOPRESSOR [Suspect]
     Dosage: 1000 MG, QD
  2. HYDRALAZINE [Suspect]
     Dosage: 100 MG, UNK
  3. METFORMIN HYDROCHLORIDE SANDOZ [Suspect]
     Indication: TYPE 2 DIABETES MELLITUS
     Dosage: 2000 MG, UNK
     Dates: end: 20120321
  4. METFORMIN HYDROCHLORIDE SANDOZ [Suspect]
     Dosage: 300 UNK, UNK
     Dates: start: 20120321
  5. LISINOPRIL [Suspect]
     Dosage: 40 MG, QD
  6. SIMVASTATIN [Suspect]
     Dosage: 800 MG, QD
  7. SAXAGLIPTIN [Suspect]
     Indication: TYPE 2 DIABETES MELLITUS
     Dosage: UNK UKN, UNK
     Dates: start: 20110722, end: 20120612
  8. HUMALOG [Suspect]
     Indication: TYPE 2 DIABETES MELLITUS
     Dosage: 80 IU, UNK
     Dates: end: 20120101
  9. HUMALOG [Suspect]
     Dosage: 50 IU, UNK
     Dates: start: 20120315
  10. HUMALOG [Suspect]
     Dosage: 30 IU, UNK
     Dates: start: 20121128
  11. LANTUS [Suspect]
     Indication: TYPE 2 DIABETES MELLITUS
     Dosage: 80 IU, UNK
  12. LANTUS [Suspect]
     Dosage: 120 IU, UNK
  13. LANTUS [Suspect]
     Dosage: 35 IU, UNK
     Dates: start: 20121128
  14. NOVOLOG [Suspect]
     Indication: TYPE 2 DIABETES MELLITUS
     Dosage: 1 DF, UNK
     Dates: start: 20111231
  15. NOVOLOG [Suspect]
     Dosage: 30 IU, UNK
     Dates: start: 20121128
  16. PERCOCET [Suspect]
     Dosage: 325 MG, UNK
  17. XANAX [Suspect]
     Dosage: 0.5 MG, QD
  18. OXYCONTIN [Suspect]
     Dosage: 1 DF, QD (40 MG)
  19. NEURONTIN [Suspect]
     Dosage: 300 MG, UNK
  20. NORCO [Suspect]
     Dosage: 1 DF, UNK
  21. NORVASC [Suspect]
     Dosage: 10 MG, QD
  22. PROTONIX [Suspect]
     Dosage: 40 MG, QD
  23. ASPIRIN [Concomitant]
     Dosage: UNK UKN, UNK
  24. BETA BLOCKING AGENTS [Concomitant]
     Dosage: UNK UKN, UNK
  25. NITRATES [Concomitant]
     Dosage: UNK UKN, UNK

REACTIONS (4)
  - Depression [Not Recovered/Not Resolved]
  - Foot fracture [Unknown]
  - Pain [Not Recovered/Not Resolved]
  - Overdose [Recovered/Resolved]
